FAERS Safety Report 4746762-5 (Version None)
Quarter: 2005Q3

REPORT INFORMATION
  Report Type: 
  Country: None (occurrence: None)
  Receive Date: 20050817
  Receipt Date: 20050805
  Transmission Date: 20060218
  Serious: Yes (Other)
  Sender: FDA-Public Use
  Company Number: 2005UW11681

PATIENT
  Age: 72 Year
  Sex: Female

DRUGS (11)
  1. CRESTOR [Suspect]
     Route: 048
  2. ALTACE [Concomitant]
  3. ASPIRIN [Concomitant]
  4. AVANDIA [Concomitant]
  5. GLYBURIDE [Concomitant]
  6. INDAPAMIDE [Concomitant]
  7. LOSEC [Concomitant]
     Route: 048
  8. METFORMIN [Concomitant]
  9. METOPROLOL [Concomitant]
  10. PLAVIX [Concomitant]
  11. TRAZODONE [Concomitant]

REACTIONS (1)
  - ALBUMINURIA [None]
